FAERS Safety Report 14896851 (Version 4)
Quarter: 2018Q4

REPORT INFORMATION
  Report Type: Report from Study
  Country: BR (occurrence: BR)
  Receive Date: 20180515
  Receipt Date: 20181130
  Transmission Date: 20190204
  Serious: Yes (Other)
  Sender: FDA-Public Use
  Company Number: BR-SA-2018SA127750

PATIENT
  Age: 59 Year
  Sex: Male
  Weight: 83 kg

DRUGS (8)
  1. AUTOPEN 24 [Suspect]
     Active Substance: DEVICE
  2. ROSUVASTATIN. [Concomitant]
     Active Substance: ROSUVASTATIN
     Indication: BLOOD CHOLESTEROL
     Dosage: 1 DF,QD
     Route: 048
     Dates: start: 201001
  3. LOSARTAN. [Concomitant]
     Active Substance: LOSARTAN
     Indication: BLOOD PRESSURE MEASUREMENT
     Dosage: 2 DF,QD
     Route: 048
     Dates: start: 201001
  4. ATENOLOL. [Concomitant]
     Active Substance: ATENOLOL
     Indication: BLOOD PRESSURE MEASUREMENT
     Dosage: 2 DF,QD
     Route: 048
     Dates: start: 201001
  5. AAS [Concomitant]
     Active Substance: ASPIRIN
     Indication: BLOOD PRESSURE MEASUREMENT
     Dosage: 1 DF,QD
     Route: 048
     Dates: start: 201001
  6. INSULIN GLARGINE [Suspect]
     Active Substance: INSULIN GLARGINE
     Indication: DIABETES MELLITUS
     Dosage: UNK, BID
     Route: 058
     Dates: start: 2004
  7. HUMALOG [Concomitant]
     Active Substance: INSULIN LISPRO
     Indication: DIABETES MELLITUS
     Dosage: 1 DF,TID
     Route: 058
     Dates: start: 1983
  8. GLIFAGE [Concomitant]
     Active Substance: METFORMIN HYDROCHLORIDE
     Indication: DIABETES MELLITUS
     Dosage: 1 IN THE MORNING 1 AT LUNCH AND 2 AFTER THE DINNER
     Route: 048
     Dates: start: 201001

REACTIONS (8)
  - Multiple use of single-use product [Unknown]
  - Incorrect dose administered [Unknown]
  - Device operational issue [Unknown]
  - Diabetic metabolic decompensation [Not Recovered/Not Resolved]
  - Inappropriate schedule of product administration [Unknown]
  - Diabetes mellitus inadequate control [Not Recovered/Not Resolved]
  - Blood glucose fluctuation [Not Recovered/Not Resolved]
  - Hyperglycaemia [Unknown]
